FAERS Safety Report 20577454 (Version 3)
Quarter: 2022Q1

REPORT INFORMATION
  Report Type: Spontaneous
  Country: US (occurrence: US)
  Receive Date: 20220310
  Receipt Date: 20220321
  Transmission Date: 20220423
  Serious: Yes (Other)
  Sender: FDA-Public Use
  Company Number: US-VER-202200058

PATIENT
  Sex: Male

DRUGS (2)
  1. TRIPTORELIN [Suspect]
     Active Substance: TRIPTORELIN
     Indication: Transgender hormonal therapy
     Route: 065
  2. ESTRADIOL VALERATE [Concomitant]
     Active Substance: ESTRADIOL VALERATE
     Indication: Transgender hormonal therapy
     Route: 065

REACTIONS (4)
  - Systemic scleroderma [Unknown]
  - Overlap syndrome [Unknown]
  - Polymyositis [Unknown]
  - Scleroderma renal crisis [Unknown]
